FAERS Safety Report 15651146 (Version 1)
Quarter: 2018Q4

REPORT INFORMATION
  Report Type: Spontaneous
  Country: US (occurrence: US)
  Receive Date: 20181123
  Receipt Date: 20181123
  Transmission Date: 20190205
  Serious: No
  Sender: FDA-Public Use
  Company Number: US-JNJFOC-20181038759

PATIENT
  Sex: Female

DRUGS (1)
  1. TYLENOL REGULAR STRENGTH [Suspect]
     Active Substance: ACETAMINOPHEN
     Indication: INFLUENZA
     Dosage: THREE TO FOUR TIMES A DAY.
     Route: 048
     Dates: start: 20181016, end: 20181027

REACTIONS (2)
  - Influenza [Recovered/Resolved]
  - Product use in unapproved indication [Unknown]
